FAERS Safety Report 23301221 (Version 1)
Quarter: 2023Q4

REPORT INFORMATION
  Report Type: Report from Study
  Country: CA (occurrence: CA)
  Receive Date: 20231215
  Receipt Date: 20231215
  Transmission Date: 20240110
  Serious: Yes (Death)
  Sender: FDA-Public Use
  Company Number: CA-ABBVIE-5539743

PATIENT
  Sex: Male

DRUGS (1)
  1. VENCLEXTA [Suspect]
     Active Substance: VENETOCLAX
     Indication: Acute myeloid leukaemia
     Dosage: LAST ADMIN DATE 2023?FORM STRENGTH: 100 MG
     Route: 048
     Dates: start: 20231115

REACTIONS (4)
  - Post procedural haemorrhage [Fatal]
  - Haemorrhage [Unknown]
  - Surgery [Fatal]
  - Unevaluable event [Unknown]

NARRATIVE: CASE EVENT DATE: 20230101
